FAERS Safety Report 10710550 (Version 2)
Quarter: 2015Q2

REPORT INFORMATION
  Report Type: Spontaneous
  Country: US (occurrence: None)
  Receive Date: 20150113
  Receipt Date: 20150612
  Transmission Date: 20150821
  Serious: Yes (Life-Threatening, Hospitalization, Other)
  Sender: FDA-Public Use
  Company Number: ADR-2015-00033

PATIENT
  Age: 66 Year
  Sex: Male

DRUGS (1)
  1. BACLOFEN INTRATHECAL [Suspect]
     Active Substance: BACLOFEN
     Indication: MUSCLE SPASTICITY
     Dosage: UNK

REACTIONS (7)
  - Overdose [None]
  - Confusional state [None]
  - Unresponsive to stimuli [None]
  - Urine output decreased [None]
  - Renal disorder [None]
  - Contrast media reaction [None]
  - Infrequent bowel movements [None]

NARRATIVE: CASE EVENT DATE: 20141228
